FAERS Safety Report 10866179 (Version 1)
Quarter: 2015Q1

REPORT INFORMATION
  Report Type: Spontaneous
  Country: US (occurrence: None)
  Receive Date: 20150219
  Receipt Date: 20150219
  Transmission Date: 20150721
  Serious: No
  Sender: FDA-Public Use
  Company Number: None

PATIENT

DRUGS (1)
  1. TREANDA [Suspect]
     Active Substance: BENDAMUSTINE HYDROCHLORIDE

REACTIONS (3)
  - Liquid product physical issue [None]
  - Product physical consistency issue [None]
  - Product quality issue [None]

NARRATIVE: CASE EVENT DATE: 20141219
